FAERS Safety Report 21660028 (Version 1)
Quarter: 2022Q4

REPORT INFORMATION
  Report Type: Report from Study
  Country: PR (occurrence: PR)
  Receive Date: 20221130
  Receipt Date: 20221130
  Transmission Date: 20230113
  Serious: No
  Sender: FDA-Public Use
  Company Number: PR-ABBVIE-4195640

PATIENT
  Sex: Female

DRUGS (5)
  1. HUMIRA [Suspect]
     Active Substance: ADALIMUMAB
     Indication: Psoriasis
     Dosage: FORM STRENGTH: 40 MILLIGRAM
     Route: 058
     Dates: start: 20220831
  2. LOSARTAN [Concomitant]
     Active Substance: LOSARTAN
     Indication: Product used for unknown indication
     Dosage: FORM STRENGTH: 50 MILLIGRAM, FREQUENCY: AT MORNINGS AND NIGHTS.
     Route: 048
  3. COVID-19 vaccine [Concomitant]
     Indication: COVID-19 immunisation
     Dosage: 1ST DOSE, FREQUENCY: ONE IN ONCE.
     Route: 030
  4. COVID-19 vaccine [Concomitant]
     Indication: COVID-19 immunisation
     Dosage: 2ND DOSE, FREQUENCY: ONE IN ONCE.
     Route: 030
  5. COVID-19 vaccine [Concomitant]
     Indication: COVID-19 immunisation
     Dosage: 3RD DOSE, FREQUENCY: ONE IN ONCE.
     Route: 030

REACTIONS (1)
  - Pruritus [Not Recovered/Not Resolved]

NARRATIVE: CASE EVENT DATE: 20221105
